FAERS Safety Report 10247444 (Version 1)
Quarter: 2014Q2

REPORT INFORMATION
  Report Type: Report from Study
  Country: BR (occurrence: BR)
  Receive Date: 20140619
  Receipt Date: 20140619
  Transmission Date: 20141212
  Serious: Yes (Other)
  Sender: FDA-Public Use
  Company Number: BR-BRISTOL-MYERS SQUIBB COMPANY-21056700

PATIENT
  Age: 59 Year
  Sex: Male
  Weight: 85 kg

DRUGS (6)
  1. ERBITUX [Suspect]
     Indication: THROAT CANCER
     Dosage: FROM 4 WEEKS AS ATTACK DOSAGE:400MG?ON AUG12:250MG/M2,1 IN 8DAY
     Dates: start: 2012
  2. DOXYCYCLINE [Concomitant]
     Dosage: TABLET
  3. MAGNESIUM PIDOLATE [Concomitant]
  4. LEVOTHYROXINE [Concomitant]
  5. TRAZODONE HCL TABS 150 MG [Concomitant]
     Indication: SLEEP DISORDER
     Dosage: 1DF=2/3 TABLETS
  6. ESCITALOPRAM [Concomitant]
     Dosage: 1DF=10MG

REACTIONS (6)
  - Diabetes mellitus [Unknown]
  - Dysphonia [Unknown]
  - Skin reaction [Unknown]
  - Paronychia [Not Recovered/Not Resolved]
  - Skin lesion [Not Recovered/Not Resolved]
  - Rash pustular [Recovered/Resolved]
